FAERS Safety Report 8135699-X (Version None)
Quarter: 2012Q1

REPORT INFORMATION
  Report Type: 
  Country: None (occurrence: None)
  Receive Date: 20120214
  Receipt Date: 20120206
  Transmission Date: 20120608
  Serious: Yes (Life-Threatening)
  Sender: FDA-Public Use
  Company Number: JP-GENZYME-THYM-1003108

PATIENT
  Sex: Female
  Weight: 68 kg

DRUGS (3)
  1. THYMOGLOBULIN [Suspect]
     Indication: APLASTIC ANAEMIA
     Dosage: 2.5 MG/KG, QD
     Route: 042
     Dates: start: 20120111, end: 20120112
  2. CYCLOSPORINE [Concomitant]
     Indication: PRODUCT USED FOR UNKNOWN INDICATION
     Dosage: UNK
     Route: 065
  3. CORTICOSTEROID NOS [Concomitant]
     Indication: PRODUCT USED FOR UNKNOWN INDICATION
     Dosage: UNK
     Route: 065

REACTIONS (3)
  - PANCYTOPENIA [None]
  - THROAT IRRITATION [None]
  - PYREXIA [None]
